FAERS Safety Report 4579727-7 (Version None)
Quarter: 2005Q1

REPORT INFORMATION
  Report Type: 
  Country: None (occurrence: None)
  Receive Date: 20050210
  Receipt Date: 20050203
  Transmission Date: 20050727
  Serious: Yes (Hospitalization)
  Sender: FDA-Public Use
  Company Number: 0500005EN0010P

PATIENT
  Age: 12 Year
  Sex: Male

DRUGS (1)
  1. ADAGEN [Suspect]
     Indication: COMBINED IMMUNODEFICIENCY
     Dosage: 250 IU QWEEK IM
     Route: 030
     Dates: start: 20030601

REACTIONS (1)
  - INFECTION [None]
